FAERS Safety Report 6504141-4 (Version None)
Quarter: 2009Q4

REPORT INFORMATION
  Report Type: 
  Country: None (occurrence: None)
  Receive Date: 20091217
  Receipt Date: 20091109
  Transmission Date: 20100525
  Serious: Yes (Hospitalization, Other)
  Sender: FDA-Public Use
  Company Number: US-MILLENNIUM PHARMACEUTICALS, INC.-2009-04663

PATIENT
  Sex: Female
  Weight: 68.027 kg

DRUGS (5)
  1. VELCADE [Suspect]
     Indication: MULTIPLE MYELOMA
     Dosage: 2.3 MG, CYCLIC
     Route: 042
     Dates: start: 20090701, end: 20091027
  2. DOXIL [Suspect]
     Indication: MULTIPLE MYELOMA
     Dosage: 50 MG, CYCLIC
     Route: 042
     Dates: start: 20090701, end: 20091023
  3. CIPRO                              /00042702/ [Concomitant]
     Indication: CYSTITIS
     Dosage: UNK
     Dates: start: 20090901, end: 20090901
  4. DEXAMETHASONE TAB [Concomitant]
     Indication: PREMEDICATION
     Dosage: 40 MG, CYCLIC
     Route: 042
  5. ZOMETA [Concomitant]
     Indication: DRUG USE FOR UNKNOWN INDICATION
     Dosage: UNK
     Route: 042
     Dates: end: 20091006

REACTIONS (11)
  - BLISTER [None]
  - CYSTITIS [None]
  - GASTROENTERITIS VIRAL [None]
  - HEADACHE [None]
  - PNEUMONIA [None]
  - RASH ERYTHEMATOUS [None]
  - RASH PRURITIC [None]
  - SKIN BURNING SENSATION [None]
  - TENDON RUPTURE [None]
  - WHITE BLOOD CELL COUNT DECREASED [None]
  - WOUND [None]
